FAERS Safety Report 26048204 (Version 1)
Quarter: 2025Q4

REPORT INFORMATION
  Report Type: Spontaneous
  Country: US (occurrence: None)
  Receive Date: 20251114
  Receipt Date: 20251114
  Transmission Date: 20260117
  Serious: Yes (Hospitalization)
  Sender: FDA-CTU
  Company Number: None

PATIENT
  Age: 65 Year
  Sex: Female
  Weight: 95.71 kg

DRUGS (1)
  1. RECLAST [Suspect]
     Active Substance: ZOLEDRONIC ACID
     Indication: Osteopenia
     Dates: start: 20251112, end: 20251112

REACTIONS (5)
  - Headache [None]
  - Pain [None]
  - Somnolence [None]
  - Gait inability [None]
  - Asthenia [None]

NARRATIVE: CASE EVENT DATE: 20251112
